FAERS Safety Report 8049593-6 (Version None)
Quarter: 2012Q1

REPORT INFORMATION
  Report Type: 
  Country: None (occurrence: None)
  Receive Date: 20120117
  Receipt Date: 20120109
  Transmission Date: 20120608
  Serious: Yes (Hospitalization, Other)
  Sender: FDA-Public Use
  Company Number: US-SANOFI-AVENTIS-2011SA065119

PATIENT
  Age: 68 Year
  Sex: Female
  Weight: 52.3 kg

DRUGS (17)
  1. PLAVIX [Suspect]
     Route: 048
     Dates: start: 20110429, end: 20110513
  2. POTASSIUM CHLORIDE [Concomitant]
     Indication: NUTRITIONAL SUPPORT
     Route: 048
  3. ALL OTHER THERAPEUTIC PRODUCTS [Concomitant]
  4. ALL OTHER THERAPEUTIC PRODUCTS [Concomitant]
  5. ALLEGRA-D 12 HOUR [Concomitant]
     Route: 048
  6. ALL OTHER THERAPEUTIC PRODUCTS [Concomitant]
     Indication: PAIN
  7. VALSARTAN [Concomitant]
     Indication: BLOOD PRESSURE
     Route: 048
  8. ARMODAFINIL [Concomitant]
     Indication: FUNGAL INFECTION
     Route: 048
  9. NEXIUM [Concomitant]
     Route: 048
  10. ALBUTEROL SULFATE AUTOHALER [Concomitant]
  11. ZIAC [Concomitant]
     Indication: HYPERTENSION
     Route: 048
  12. ISOPROPYL ALCOHOL [Concomitant]
     Route: 061
  13. HYDROCODONE BITARTRATE [Concomitant]
     Indication: PAIN
     Route: 048
  14. PLAVIX [Suspect]
     Indication: ANTICOAGULANT THERAPY
     Route: 048
     Dates: start: 20110429, end: 20110513
  15. NEXIUM [Concomitant]
     Route: 048
  16. CEFUROXIME [Concomitant]
     Route: 048
  17. PLAVIX [Suspect]
     Route: 048
     Dates: start: 20110429, end: 20110513

REACTIONS (6)
  - LOCALISED INFECTION [None]
  - WEIGHT DECREASED [None]
  - BLISTER [None]
  - DRUG HYPERSENSITIVITY [None]
  - GANGRENE [None]
  - SCAB [None]
